FAERS Safety Report 4792832-5 (Version None)
Quarter: 2005Q4

REPORT INFORMATION
  Report Type: 
  Country: None (occurrence: None)
  Receive Date: 20051010
  Receipt Date: 20050930
  Transmission Date: 20060501
  Serious: Yes (Other)
  Sender: FDA-Public Use
  Company Number: PHBS2005US14512

PATIENT
  Age: 48 Year
  Sex: Female

DRUGS (1)
  1. CICLOSPORIN [Suspect]
     Indication: COLITIS ULCERATIVE
     Dosage: 160 MG/D

REACTIONS (7)
  - ANTI FACTOR VIII ANTIBODY POSITIVE [None]
  - ANTITHROMBIN III INCREASED [None]
  - APHASIA [None]
  - BLOOD FIBRINOGEN INCREASED [None]
  - HAEMORRHAGIC CEREBRAL INFARCTION [None]
  - HEADACHE [None]
  - INTRACRANIAL VENOUS SINUS THROMBOSIS [None]
